FAERS Safety Report 9519005 (Version 1)
Quarter: 2013Q3

REPORT INFORMATION
  Report Type: Spontaneous
  Country: US (occurrence: US)
  Receive Date: 20130912
  Receipt Date: 20130912
  Transmission Date: 20140515
  Serious: Yes (Hospitalization, Other)
  Sender: FDA-Public Use
  Company Number: US-PFIZER INC-2013257295

PATIENT
  Age: 45 Year
  Sex: Female
  Weight: 95.69 kg

DRUGS (6)
  1. GLUCOTROL [Suspect]
     Indication: DIABETES MELLITUS
     Dosage: 5 MG, 2X/DAY
  2. NITROGLYCERIN [Suspect]
     Indication: CARDIAC DISORDER
     Dosage: UNK
     Route: 062
  3. NITROGLYCERIN [Suspect]
     Dosage: UNK
  4. NITROGLYCERIN [Suspect]
     Indication: CARDIAC DISORDER
     Dosage: UNK
  5. ASPIRIN [Concomitant]
     Dosage: UNK, 1X/DAY
  6. METOPROLOL [Concomitant]
     Dosage: 25 MG, 2X/DAY

REACTIONS (2)
  - Drug ineffective [Unknown]
  - Myocardial infarction [Recovered/Resolved]
